FAERS Safety Report 19584556 (Version 2)
Quarter: 2022Q1

REPORT INFORMATION
  Report Type: Spontaneous
  Country: US (occurrence: US)
  Receive Date: 20210720
  Receipt Date: 20220208
  Transmission Date: 20220423
  Serious: Yes (Other)
  Sender: FDA-Public Use
  Company Number: US-GILEAD-2021-0541224

PATIENT
  Age: 42 Year
  Sex: Male
  Weight: 85.729 kg

DRUGS (62)
  1. TRUVADA [Suspect]
     Active Substance: EMTRICITABINE\TENOFOVIR DISOPROXIL FUMARATE
     Indication: HIV infection
     Dosage: UNK
     Route: 048
     Dates: start: 20110307, end: 2014
  2. TRUVADA [Suspect]
     Active Substance: EMTRICITABINE\TENOFOVIR DISOPROXIL FUMARATE
     Dosage: UNK
     Route: 048
     Dates: start: 20100802, end: 20101031
  3. TRUVADA [Suspect]
     Active Substance: EMTRICITABINE\TENOFOVIR DISOPROXIL FUMARATE
     Dosage: UNK
     Route: 048
     Dates: start: 2014
  4. TRUVADA [Suspect]
     Active Substance: EMTRICITABINE\TENOFOVIR DISOPROXIL FUMARATE
     Dosage: UNK
     Route: 048
     Dates: start: 2014, end: 2014
  5. DESCOVY [Concomitant]
     Active Substance: EMTRICITABINE\TENOFOVIR ALAFENAMIDE FUMARATE
  6. EPZICOM [Concomitant]
     Active Substance: ABACAVIR SULFATE\LAMIVUDINE
  7. EVOTAZ [Concomitant]
     Active Substance: ATAZANAVIR SULFATE\COBICISTAT
  8. ISENTRESS [Concomitant]
     Active Substance: RALTEGRAVIR POTASSIUM
  9. NORVIR [Concomitant]
     Active Substance: RITONAVIR
  10. PIFELTRO [Concomitant]
     Active Substance: DORAVIRINE
  11. PREZCOBIX [Concomitant]
     Active Substance: COBICISTAT\DARUNAVIR ETHANOLATE
  12. PREZISTA [Concomitant]
     Active Substance: DARUNAVIR ETHANOLATE
  13. REYATAZ [Concomitant]
     Active Substance: ATAZANAVIR SULFATE
  14. TIVICAY [Concomitant]
     Active Substance: DOLUTEGRAVIR SODIUM
  15. ZIAGEN [Concomitant]
     Active Substance: ABACAVIR SULFATE
  16. ACETAMINOPHEN [Concomitant]
     Active Substance: ACETAMINOPHEN
  17. ACYCLOVIR [Concomitant]
     Active Substance: ACYCLOVIR
  18. AMITIZA [Concomitant]
     Active Substance: LUBIPROSTONE
  19. AZITHROMYCIN [Concomitant]
     Active Substance: AZITHROMYCIN
  20. BACLOFEN [Concomitant]
     Active Substance: BACLOFEN
  21. CALCITRIOL [Concomitant]
     Active Substance: CALCITRIOL
  22. CARVEDILOL [Concomitant]
     Active Substance: CARVEDILOL
  23. CEPHALEXIN [Concomitant]
     Active Substance: CEPHALEXIN
  24. CETIRIZINE [Concomitant]
     Active Substance: CETIRIZINE HYDROCHLORIDE
  25. CIPROFLOXACIN [Concomitant]
     Active Substance: CIPROFLOXACIN
  26. CLINDAMYCIN [Concomitant]
     Active Substance: CLINDAMYCIN
  27. CYCLOBENZAPRINE [Concomitant]
     Active Substance: CYCLOBENZAPRINE
  28. DESOXIMETASONE [Concomitant]
     Active Substance: DESOXIMETASONE
  29. DEXILANT [Concomitant]
     Active Substance: DEXLANSOPRAZOLE
  30. DICYCLOMINE CO [Concomitant]
  31. DOCQLACE [Concomitant]
     Active Substance: DOCUSATE SODIUM
  32. DOCUSATE [Concomitant]
     Active Substance: DOCUSATE
  33. DOK [Concomitant]
     Active Substance: DOCUSATE SODIUM
  34. DOXYCYCLINE [Concomitant]
     Active Substance: DOXYCYCLINE
  35. ESCITALOPRAM [Concomitant]
     Active Substance: ESCITALOPRAM OXALATE
  36. ETODOLAC [Concomitant]
     Active Substance: ETODOLAC
  37. FUROSEMIDE [Concomitant]
     Active Substance: FUROSEMIDE
  38. FLUCONAZOLE [Concomitant]
     Active Substance: FLUCONAZOLE
  39. GABAPENTIN [Concomitant]
     Active Substance: GABAPENTIN
  40. HYDROCHLOROTHIAZIDE [Concomitant]
     Active Substance: HYDROCHLOROTHIAZIDE
  41. HYDROCODONE [Concomitant]
     Active Substance: HYDROCODONE
  42. IPRATROPIUM [Concomitant]
     Active Substance: IPRATROPIUM
  43. LAMICTAL [Concomitant]
     Active Substance: LAMOTRIGINE
  44. LEVOTHYROXINE [Concomitant]
     Active Substance: LEVOTHYROXINE
  45. LIDOCAINE [Concomitant]
     Active Substance: LIDOCAINE
  46. LISINOPRIL [Concomitant]
     Active Substance: LISINOPRIL
  47. LOSARTAN [Concomitant]
     Active Substance: LOSARTAN
  48. LYRICA [Concomitant]
     Active Substance: PREGABALIN
  49. METHOCARBAMOL [Concomitant]
     Active Substance: METHOCARBAMOL
  50. METOPROLOL [Concomitant]
     Active Substance: METOPROLOL
  51. NITROFURANTOIN [Concomitant]
     Active Substance: NITROFURANTOIN
  52. NORTRIPTYLINE [Concomitant]
     Active Substance: NORTRIPTYLINE
  53. NYSTATIN [Concomitant]
     Active Substance: NYSTATIN
  54. OMEPRAZOLE [Concomitant]
     Active Substance: OMEPRAZOLE
  55. ONDANSETRON [Concomitant]
     Active Substance: ONDANSETRON
  56. OSELTAMIVIR [Concomitant]
     Active Substance: OSELTAMIVIR
  57. OXYCODONE [Concomitant]
     Active Substance: OXYCODONE
  58. RANITIDINE [Concomitant]
     Active Substance: RANITIDINE
  59. SUDAFED NASAL DECONGESTANT MAXIMUM STRENGTH [Concomitant]
     Active Substance: PSEUDOEPHEDRINE HYDROCHLORIDE
  60. TIROSINT [Concomitant]
     Active Substance: LEVOTHYROXINE SODIUM
  61. TIZANIDINE [Concomitant]
     Active Substance: TIZANIDINE
  62. HARVONI [Concomitant]
     Active Substance: LEDIPASVIR\SOFOSBUVIR

REACTIONS (11)
  - Osteoporosis [Not Recovered/Not Resolved]
  - Bone density decreased [Unknown]
  - Emotional distress [Not Recovered/Not Resolved]
  - Anxiety [Not Recovered/Not Resolved]
  - Anhedonia [Not Recovered/Not Resolved]
  - Pain [Not Recovered/Not Resolved]
  - Chronic kidney disease [Not Recovered/Not Resolved]
  - Proteinuria [Not Recovered/Not Resolved]
  - Anaemia [Not Recovered/Not Resolved]
  - Renal impairment [Not Recovered/Not Resolved]
  - Hypertension [Not Recovered/Not Resolved]

NARRATIVE: CASE EVENT DATE: 20110301
